FAERS Safety Report 9786534 (Version 1)
Quarter: 2013Q4

REPORT INFORMATION
  Report Type: Spontaneous
  Country: DE (occurrence: None)
  Receive Date: 20131224
  Receipt Date: 20131224
  Transmission Date: 20140711
  Serious: Yes (Hospitalization)
  Sender: FDA-Public Use
  Company Number: 1312-1620

PATIENT
  Age: 86 Year
  Sex: Female

DRUGS (1)
  1. EYLEA [Suspect]
     Indication: AGE-RELATED MACULAR DEGENERATION
     Dates: start: 20120122

REACTIONS (6)
  - Drug ineffective [None]
  - Ocular hyperaemia [None]
  - Fall [None]
  - Visual impairment [None]
  - Ocular hyperaemia [None]
  - Joint instability [None]
